FAERS Safety Report 5409279-0 (Version None)
Quarter: 2007Q3

REPORT INFORMATION
  Report Type: 
  Country: None (occurrence: None)
  Receive Date: 20070809
  Receipt Date: 20070806
  Transmission Date: 20080115
  Serious: Yes (Life-Threatening)
  Sender: FDA-Public Use
  Company Number: PHEH2007US10790

PATIENT
  Age: 70 Year
  Sex: Male
  Weight: 62.131 kg

DRUGS (2)
  1. VASOTEC [Suspect]
  2. TEKTURNA [Suspect]
     Dosage: 150 UNK, QD
     Route: 048

REACTIONS (3)
  - ATRIOVENTRICULAR BLOCK [None]
  - BLOOD CREATININE INCREASED [None]
  - BLOOD POTASSIUM INCREASED [None]
